FAERS Safety Report 14278072 (Version 1)
Quarter: 2017Q4

REPORT INFORMATION
  Report Type: Spontaneous
  Country: CH (occurrence: CH)
  Receive Date: 20171212
  Receipt Date: 20171212
  Transmission Date: 20180321
  Serious: Yes (Other)
  Sender: FDA-Public Use
  Company Number: CH-LPDUSPRD-20171673

PATIENT
  Age: 37 Year
  Sex: Female
  Weight: 165 kg

DRUGS (2)
  1. FERINJECT [Suspect]
     Active Substance: FERRIC CARBOXYMALTOSE
     Dosage: 500 MG
     Route: 065
     Dates: start: 20170929
  2. ARCOXIA [Concomitant]
     Active Substance: ETORICOXIB
     Dosage: UNKNOWN
     Route: 065

REACTIONS (4)
  - Hypophosphataemia [Unknown]
  - Asthenia [Unknown]
  - Fatigue [Unknown]
  - Dyspnoea exertional [Unknown]

NARRATIVE: CASE EVENT DATE: 201710
